FAERS Safety Report 23877702 (Version 1)
Quarter: 2024Q2

REPORT INFORMATION
  Report Type: Spontaneous
  Country: FR (occurrence: FR)
  Receive Date: 20240521
  Receipt Date: 20240521
  Transmission Date: 20240716
  Serious: Yes (Life-Threatening, Hospitalization)
  Sender: FDA-Public Use
  Company Number: None

PATIENT
  Age: 51 Year
  Sex: Male
  Weight: 64.5 kg

DRUGS (21)
  1. KEYTRUDA [Suspect]
     Active Substance: PEMBROLIZUMAB
     Indication: Lung adenocarcinoma
     Dosage: 200.000MG
     Route: 042
     Dates: start: 20240313, end: 20240313
  2. KEYTRUDA [Suspect]
     Active Substance: PEMBROLIZUMAB
     Dosage: 200.000MG
     Route: 042
     Dates: start: 20240222, end: 20240222
  3. PEMETREXED [Suspect]
     Active Substance: PEMETREXED
     Indication: Lung adenocarcinoma
     Dosage: 935 MG
     Route: 042
     Dates: start: 20240411, end: 20240411
  4. MORPHINE SULFATE [Concomitant]
     Active Substance: MORPHINE SULFATE
     Indication: Product used for unknown indication
     Dosage: 1 DF, QD (EN SI BESOIN TOUTES LES 4 HEURES)
     Route: 048
  5. ALPRAZOLAM [Concomitant]
     Active Substance: ALPRAZOLAM
     Indication: Product used for unknown indication
     Dosage: 1 MG, QD (0.5 MG MATIN ET SOIR)
     Route: 048
  6. ATORVASTATIN [Concomitant]
     Active Substance: ATORVASTATIN
     Indication: Product used for unknown indication
     Dosage: 80 MG, QD (40 MG 2 CP LE SOIR)
     Route: 048
  7. INDAPAMIDE\PERINDOPRIL [Concomitant]
     Active Substance: INDAPAMIDE\PERINDOPRIL
     Indication: Product used for unknown indication
     Dosage: 225 MG, QD (75 MG; 3 CP LE MATIN), 10 MG/2,5 MG, COMPRIM? PELLICUL?
     Route: 048
  8. CARBOPLATIN [Concomitant]
     Active Substance: CARBOPLATIN
     Dosage: 374.250MG
     Route: 042
     Dates: start: 20240201, end: 20240201
  9. CARBOPLATIN [Concomitant]
     Active Substance: CARBOPLATIN
     Dosage: 417.350MG
     Route: 042
     Dates: start: 20240222, end: 20240222
  10. CARBOPLATIN [Concomitant]
     Active Substance: CARBOPLATIN
     Indication: Lung adenocarcinoma
     Dosage: 442.250MG
     Route: 042
     Dates: start: 20240313, end: 20240313
  11. KARDEGIC [Concomitant]
     Active Substance: ASPIRIN DL-LYSINE
     Indication: Product used for unknown indication
     Dosage: 100.000MG QD
     Route: 048
  12. MOVICOL [Concomitant]
     Active Substance: POLYETHYLENE GLYCOL 3350\POTASSIUM CHLORIDE\SODIUM BICARBONATE\SODIUM CHLORIDE
     Indication: Product used for unknown indication
     Dosage: 1 DF, QD (2 SACHETS LE MATIN)
     Route: 048
  13. NALOXEGOL [Concomitant]
     Active Substance: NALOXEGOL
     Indication: Product used for unknown indication
     Dosage: 25 MG, QD (25 MG LE MATIN)
     Route: 048
  14. NICOPATCH [Concomitant]
     Active Substance: NICOTINE
     Indication: Product used for unknown indication
     Dosage: 1 DF, QD (21MG/24H, 21 MG/24H, DISPOSITIF TRANSDERMIQUE DE 52,5 MG/30 CM?)
     Route: 062
  15. ONDANSETRON [Concomitant]
     Active Substance: ONDANSETRON
     Indication: Product used for unknown indication
     Dosage: 16 MG, QD (8 MG MATIN ET SOIR)
     Route: 048
  16. PACLITAXEL [Concomitant]
     Active Substance: PACLITAXEL
     Indication: Lung adenocarcinoma
     Dosage: 307.200MG
     Route: 042
     Dates: start: 20240313, end: 20240313
  17. PACLITAXEL [Concomitant]
     Active Substance: PACLITAXEL
     Dosage: 382.000MG
     Route: 042
     Dates: start: 20240222, end: 20240222
  18. SKENAN [Concomitant]
     Active Substance: MORPHINE SULFATE
     Indication: Product used for unknown indication
     Dosage: 40 MG, QD (20 MG MATIN ET SOIR), 10 MG, MICROGRANULES ? LIB?RATION PROLONG?E EN G?LULE
     Route: 048
  19. VALPROATE SODIUM [Concomitant]
     Active Substance: VALPROATE SODIUM
     Indication: Product used for unknown indication
     Dosage: 1000 MG, QD (500 MG 2 CP MATIN ET SOIR)
     Route: 048
  20. VENLAFAXINE HYDROCHLORIDE [Concomitant]
     Active Substance: VENLAFAXINE HYDROCHLORIDE
     Indication: Product used for unknown indication
     Dosage: 225 MG, QD (75 MG; 3 CP LE MATIN), CHLORHYDRATE DE VENLAFAXINE
     Route: 048
  21. VERAPAMIL HYDROCHLORIDE [Concomitant]
     Active Substance: VERAPAMIL HYDROCHLORIDE
     Indication: Product used for unknown indication
     Dosage: 120 MG LE MATIN, CHLORHYDRATE DE VERAPAMIL
     Route: 048

REACTIONS (2)
  - Haemophagocytic lymphohistiocytosis [Recovering/Resolving]
  - Rash [Recovering/Resolving]

NARRATIVE: CASE EVENT DATE: 20240423
